FAERS Safety Report 16244326 (Version 2)
Quarter: 2019Q2

REPORT INFORMATION
  Report Type: Spontaneous
  Country: US (occurrence: US)
  Receive Date: 20190426
  Receipt Date: 20190508
  Transmission Date: 20190711
  Serious: Yes (Other)
  Sender: FDA-Public Use
  Company Number: US-AMGEN-USASP2019063434

PATIENT
  Age: 74 Year
  Sex: Female

DRUGS (1)
  1. REPATHA [Suspect]
     Active Substance: EVOLOCUMAB
     Indication: BLOOD CHOLESTEROL INCREASED
     Dosage: 140 MILLIGRAM, Q2WK
     Route: 065
     Dates: start: 201711

REACTIONS (8)
  - Arthralgia [Unknown]
  - Flank pain [Unknown]
  - Cough [Unknown]
  - Injection site pain [Unknown]
  - Back pain [Unknown]
  - Rhinorrhoea [Unknown]
  - Wrong technique in product usage process [Unknown]
  - Trigger finger [Unknown]

NARRATIVE: CASE EVENT DATE: 201712
